FAERS Safety Report 4736401-1 (Version None)
Quarter: 2005Q3

REPORT INFORMATION
  Report Type: 
  Country: None (occurrence: None)
  Receive Date: 20050808
  Receipt Date: 20050803
  Transmission Date: 20060218
  Serious: Yes (Death, Hospitalization)
  Sender: FDA-Public Use
  Company Number: US-BRISTOL-MYERS SQUIBB COMPANY-13061866

PATIENT
  Age: 63 Year
  Sex: Male

DRUGS (9)
  1. BLINDED: MURAGLITAZAR [Suspect]
     Indication: DIABETES MELLITUS NON-INSULIN-DEPENDENT
     Dates: start: 20050415, end: 20050702
  2. GLIMEPIRIDE [Suspect]
     Indication: DIABETES MELLITUS NON-INSULIN-DEPENDENT
     Dates: start: 20050415, end: 20050702
  3. METFORMIN HCL [Suspect]
     Indication: DIABETES MELLITUS NON-INSULIN-DEPENDENT
     Route: 048
     Dates: start: 20040101
  4. GLIPIZIDE [Concomitant]
     Dates: start: 20050601
  5. ACTOS [Concomitant]
  6. ZESTORETIC [Concomitant]
     Dosage: 1 DOSAGE FORM = 20/12.5 MG
     Dates: start: 20041030
  7. ROLAIDS [Concomitant]
     Dates: start: 19840101
  8. VIAGRA [Concomitant]
     Dates: start: 20020101
  9. ASPIRIN [Concomitant]
     Dates: start: 20020101

REACTIONS (4)
  - ACIDOSIS [None]
  - RENAL FAILURE ACUTE [None]
  - RESPIRATORY FAILURE [None]
  - SEPSIS [None]
